FAERS Safety Report 10613559 (Version 3)
Quarter: 2019Q4

REPORT INFORMATION
  Report Type: Spontaneous
  Country: GB (occurrence: GB)
  Receive Date: 20141128
  Receipt Date: 20191122
  Transmission Date: 20200122
  Serious: Yes (Death)
  Sender: FDA-Public Use
  Company Number: GB-RANBAXY-2014RR-88197

PATIENT
  Age: 94 Year
  Sex: Female

DRUGS (6)
  1. ANALGESICS [Suspect]
     Active Substance: UNSPECIFIED INGREDIENT
     Indication: HIP SURGERY
     Route: 065
  2. SODIUM CHLORIDE. [Concomitant]
     Active Substance: SODIUM CHLORIDE
     Indication: PRODUCT USED FOR UNKNOWN INDICATION
     Route: 041
  3. POTASSIUM CHLORIDE. [Concomitant]
     Active Substance: POTASSIUM CHLORIDE
     Indication: HYPOKALAEMIA
     Route: 041
  4. PARACETAMOL [Concomitant]
     Active Substance: ACETAMINOPHEN
     Indication: HIP SURGERY
     Dosage: UNK
     Route: 065
  5. ANAESTHETIC [Concomitant]
     Active Substance: UNSPECIFIED INGREDIENT
     Indication: HIP SURGERY
     Route: 065
  6. CODEINE [Suspect]
     Active Substance: CODEINE
     Indication: HIP SURGERY
     Dosage: GIVEN EVERY 6 HOURS
     Route: 065

REACTIONS (3)
  - Overdose [Fatal]
  - Metabolic acidosis [Fatal]
  - Hyperkalaemia [Fatal]
